FAERS Safety Report 17899394 (Version 1)
Quarter: 2020Q2

REPORT INFORMATION
  Report Type: Spontaneous
  Country: US (occurrence: US)
  Receive Date: 20200615
  Receipt Date: 20200615
  Transmission Date: 20200714
  Serious: Yes (Other)
  Sender: FDA-Public Use
  Company Number: None

PATIENT
  Age: 49 Year
  Sex: Male
  Weight: 126.4 kg

DRUGS (11)
  1. FENTANYL INFUSION [Concomitant]
     Active Substance: FENTANYL
     Dates: start: 20200612
  2. AZITHROMYCIN 500MG IV DAILY [Concomitant]
     Dates: start: 20200611
  3. REMDESIVIR. [Suspect]
     Active Substance: REMDESIVIR
     Indication: COVID-19
     Route: 041
     Dates: start: 20200612, end: 20200614
  4. METHYPREDNISOLONE 40MG IV Q8H [Concomitant]
     Dates: start: 20200611
  5. PROPOFOL INFUSION [Concomitant]
     Active Substance: PROPOFOL
     Dates: start: 20200612
  6. CEFTRIAXONE 2G IV DAILY [Concomitant]
     Dates: start: 20200611
  7. TOCILIZUMAB 800MG IV ONCE [Concomitant]
     Dates: start: 20200613, end: 20200613
  8. NOREPINEPHRINE INFUSION [Concomitant]
     Dates: start: 20200613
  9. ENOXAPARIN 40MG SUBCUT Q24H [Concomitant]
     Dates: start: 20200610
  10. VECURONIUM [Concomitant]
     Active Substance: VECURONIUM BROMIDE
     Dates: start: 20200612, end: 20200613
  11. FAMOTIDINE 20MG PO DAILY [Concomitant]
     Dates: start: 20200612

REACTIONS (2)
  - Glomerular filtration rate decreased [None]
  - Therapy cessation [None]

NARRATIVE: CASE EVENT DATE: 20200613
